FAERS Safety Report 9352177 (Version 1)
Quarter: 2013Q2

REPORT INFORMATION
  Report Type: Spontaneous
  Country: US (occurrence: US)
  Receive Date: 20130617
  Receipt Date: 20130617
  Transmission Date: 20140414
  Serious: Yes (Other)
  Sender: FDA-Public Use
  Company Number: US-PFIZER INC-2013178743

PATIENT
  Age: 64 Year
  Sex: Male
  Weight: 70.75 kg

DRUGS (1)
  1. LIPITOR [Suspect]
     Indication: BLOOD CHOLESTEROL INCREASED
     Dosage: 1 DF, 1X/DAY
     Route: 048
     Dates: start: 2010, end: 201208

REACTIONS (4)
  - Sciatic nerve neuropathy [Unknown]
  - Pain [Unknown]
  - Pain in extremity [Unknown]
  - Pain in extremity [Unknown]
